FAERS Safety Report 8288274-0 (Version None)
Quarter: 2012Q2

REPORT INFORMATION
  Report Type: 
  Country: None (occurrence: None)
  Receive Date: 20120416
  Receipt Date: 20120409
  Transmission Date: 20120825
  Serious: Yes (Hospitalization)
  Sender: FDA-Public Use
  Company Number: PHHO2012CA005621

PATIENT
  Sex: Female
  Weight: 87.6 kg

DRUGS (11)
  1. LOSARTAN POTASSIUM [Concomitant]
     Indication: HYPERTENSION
     Dosage: UNK
  2. OXYBUTYNIN [Suspect]
     Dosage: UNK
  3. BLINDED ALISKIREN [Suspect]
     Indication: CARDIOVASCULAR DISORDER
     Dosage: CODE NOT BROKEN
     Route: 048
     Dates: start: 20080528
  4. PRIMIDONE [Concomitant]
     Dosage: UNK
  5. BLINDED NO TREATMENT RECEIVED [Suspect]
     Indication: CARDIOVASCULAR DISORDER
     Dosage: CODE NOT BROKEN
     Route: 048
     Dates: start: 20080528
  6. LANTUS [Concomitant]
     Indication: DIABETES MELLITUS
     Dosage: UNK
  7. MIRTAZAPINE [Concomitant]
     Indication: DEPRESSION
  8. INSULIN ASPART [Concomitant]
     Indication: DIABETES MELLITUS
     Dosage: UNK
  9. AMITRIPTYLINE HCL [Suspect]
     Dosage: UNK
  10. PLACEBO [Suspect]
     Indication: CARDIOVASCULAR DISORDER
     Dosage: CODE NOT BROKEN
     Route: 048
     Dates: start: 20080528
  11. LEVOTHYROXINE SODIUM [Concomitant]
     Indication: HYPOTHYROIDISM
     Dosage: UNK

REACTIONS (1)
  - FAMILIAL HYPOCALCIURIC HYPERCALCAEMIA [None]
